FAERS Safety Report 6285650-2 (Version None)
Quarter: 2009Q3

REPORT INFORMATION
  Report Type: 
  Country: None (occurrence: None)
  Receive Date: 20090727
  Receipt Date: 20090717
  Transmission Date: 20100115
  Serious: Yes (Life-Threatening, Other)
  Sender: FDA-Public Use
  Company Number: JP-MERCK-0906USA05520

PATIENT
  Age: 89 Year
  Sex: Female

DRUGS (5)
  1. HYZAAR [Suspect]
     Indication: HYPERTENSION
     Route: 048
     Dates: start: 20080628, end: 20090615
  2. NORVASC [Concomitant]
     Indication: HYPERTENSION
     Route: 048
     Dates: start: 20071221
  3. ADALAT [Concomitant]
     Indication: HYPERTENSION
     Route: 048
     Dates: start: 20090116
  4. SERENACE [Concomitant]
     Indication: DEMENTIA
     Route: 048
     Dates: start: 20081011, end: 20090616
  5. ZOCOR [Concomitant]
     Indication: HYPERCHOLESTEROLAEMIA
     Route: 048
     Dates: start: 20071221

REACTIONS (3)
  - DEMENTIA [None]
  - HYPOKALAEMIA [None]
  - RIB FRACTURE [None]
